FAERS Safety Report 9018165 (Version 1)
Quarter: 2013Q1

REPORT INFORMATION
  Report Type: Spontaneous
  Country: CN (occurrence: CN)
  Receive Date: 20130117
  Receipt Date: 20130117
  Transmission Date: 20140127
  Serious: Yes (Other)
  Sender: FDA-Public Use
  Company Number: PHHY2012CN124741

PATIENT
  Age: 67 Year
  Sex: Male
  Weight: 60 kg

DRUGS (1)
  1. LESCOL [Suspect]
     Indication: HYPERLIPIDAEMIA
     Dosage: 40 MG, QD
     Route: 048
     Dates: start: 20091202, end: 20100216

REACTIONS (4)
  - Generalised oedema [Recovering/Resolving]
  - Angioedema [Recovering/Resolving]
  - Face oedema [Recovering/Resolving]
  - Discomfort [Recovering/Resolving]
